FAERS Safety Report 5425396-3 (Version None)
Quarter: 2007Q3

REPORT INFORMATION
  Report Type: 
  Country: None (occurrence: None)
  Receive Date: 20070824
  Receipt Date: 20070801
  Transmission Date: 20080115
  Serious: No
  Sender: FDA-Public Use
  Company Number: US-BOEHRINGER INGELHEIM PHARMACEUTICALS, INC.-2007-BP-18485BP

PATIENT
  Age: 78 Year
  Sex: Male

DRUGS (4)
  1. FLOMAX [Suspect]
     Indication: BENIGN PROSTATIC HYPERPLASIA
     Route: 048
     Dates: start: 20070301
  2. AVANDIA [Concomitant]
     Indication: DIABETES MELLITUS
  3. TYLENOL [Concomitant]
  4. ASPIRIN [Concomitant]

REACTIONS (2)
  - NOCTURIA [None]
  - POLLAKIURIA [None]
